FAERS Safety Report 9150995 (Version 1)
Quarter: 2013Q1

REPORT INFORMATION
  Report Type: Spontaneous
  Country: US (occurrence: US)
  Receive Date: 20130308
  Receipt Date: 20130308
  Transmission Date: 20140127
  Serious: No
  Sender: FDA-Public Use
  Company Number: US-GLAXOSMITHKLINE-A1005244A

PATIENT
  Sex: Female

DRUGS (2)
  1. OLUX-E FOAM 0.05% [Suspect]
     Indication: DERMATOSIS
     Route: 061
  2. NO CONCURRENT MEDICATION [Concomitant]

REACTIONS (2)
  - Swollen tongue [Recovered/Resolved]
  - Pharyngeal oedema [Unknown]
